FAERS Safety Report 21404914 (Version 1)
Quarter: 2022Q4

REPORT INFORMATION
  Report Type: Spontaneous
  Country: US (occurrence: None)
  Receive Date: 20221002
  Receipt Date: 20221002
  Transmission Date: 20230112
  Serious: Yes (Death)
  Sender: FDA-Public Use
  Company Number: None

PATIENT
  Age: 3 Year
  Sex: Male
  Weight: 15.2 kg

DRUGS (4)
  1. DEXAMETHASONE [Suspect]
     Active Substance: DEXAMETHASONE
     Dates: end: 20220928
  2. METHOTREXATE [Suspect]
     Active Substance: METHOTREXATE
     Dates: end: 20220915
  3. ONCASPAR [Suspect]
     Active Substance: PEGASPARGASE
     Dosage: OTHER STRENGTH : 1600 UNITS;?
     Dates: end: 20220911
  4. VINCRISTINE SULFATE [Suspect]
     Active Substance: VINCRISTINE SULFATE
     Dates: end: 20220922

REACTIONS (7)
  - Respiratory distress [None]
  - Heart rate increased [None]
  - Blood pressure decreased [None]
  - Abdominal pain [None]
  - Bradycardia [None]
  - Pseudomonas test positive [None]
  - Pulseless electrical activity [None]

NARRATIVE: CASE EVENT DATE: 20220929
